FAERS Safety Report 5262155-9 (Version None)
Quarter: 2007Q1

REPORT INFORMATION
  Report Type: 
  Country: None (occurrence: None)
  Receive Date: 20070308
  Receipt Date: 20070302
  Transmission Date: 20070707
  Serious: Yes (Hospitalization)
  Sender: FDA-Public Use
  Company Number: 2007-00553

PATIENT
  Age: 59 Year
  Sex: Female

DRUGS (5)
  1. VELCADE [Suspect]
     Indication: MYELODYSPLASTIC SYNDROME
     Dosage: INTRAVENOUS
     Route: 042
     Dates: start: 20070119, end: 20070131
  2. CYTARABINE [Suspect]
     Indication: MYELODYSPLASTIC SYNDROME
     Dosage: INTRAVENOUS
     Route: 042
  3. LOGIMAX (FELODIPINE METOPROLOL SUCCINATE) [Concomitant]
  4. CORVASAL (MOLSIDOMINE) [Concomitant]
  5. INFLUENZA VACCINE (INFLUENZA VACCINE) [Concomitant]

REACTIONS (12)
  - CULTURE URINE POSITIVE [None]
  - EYELID OEDEMA [None]
  - HIDRADENITIS [None]
  - INJECTION SITE OEDEMA [None]
  - INJECTION SITE REACTION [None]
  - KLEBSIELLA INFECTION [None]
  - LARYNGEAL OEDEMA [None]
  - LYMPHANGITIS [None]
  - RASH ERYTHEMATOUS [None]
  - RASH PAPULAR [None]
  - SKIN LESION [None]
  - SKIN NODULE [None]
